FAERS Safety Report 10501071 (Version 1)
Quarter: 2014Q4

REPORT INFORMATION
  Report Type: Spontaneous
  Country: CA (occurrence: CA)
  Receive Date: 20141007
  Receipt Date: 20141007
  Transmission Date: 20150528
  Serious: Yes (Other)
  Sender: FDA-Public Use
  Company Number: CA-MERCK-1410CAN002114

PATIENT
  Age: 58 Year
  Sex: Male

DRUGS (1)
  1. JANUVIA [Suspect]
     Active Substance: SITAGLIPTIN PHOSPHATE
     Dosage: DAILY DOSE: DAILY
     Route: 048

REACTIONS (2)
  - Surgery [Unknown]
  - Hernia [Unknown]

NARRATIVE: CASE EVENT DATE: 20140929
